FAERS Safety Report 4501341-X (Version None)
Quarter: 2004Q4

REPORT INFORMATION
  Report Type: 
  Country: None (occurrence: None)
  Receive Date: 20041109
  Receipt Date: 20041022
  Transmission Date: 20050328
  Serious: Yes (Hospitalization)
  Sender: FDA-Public Use
  Company Number: DSA_60454_2004

PATIENT
  Age: 58 Year
  Sex: Male

DRUGS (1)
  1. MIGRANAL [Suspect]
     Indication: CLUSTER HEADACHE
     Dosage: 4 MG PRN IN

REACTIONS (1)
  - DEEP VEIN THROMBOSIS [None]
